FAERS Safety Report 21607644 (Version 2)
Quarter: 2022Q4

REPORT INFORMATION
  Report Type: Report from Study
  Country: US (occurrence: US)
  Receive Date: 20221117
  Receipt Date: 20221213
  Transmission Date: 20230113
  Serious: Yes (Hospitalization, Other)
  Sender: FDA-Public Use
  Company Number: US-UCBSA-2022065198

PATIENT
  Age: 57 Year
  Sex: Female
  Weight: 160 kg

DRUGS (3)
  1. LEVETIRACETAM [Suspect]
     Active Substance: LEVETIRACETAM
     Indication: Partial seizures
     Dosage: 150 MILLIGRAM, 12X2
     Dates: start: 20221109
  2. LEVETIRACETAM [Suspect]
     Active Substance: LEVETIRACETAM
     Dosage: UNK
  3. BRIVIACT [Suspect]
     Active Substance: BRIVARACETAM
     Indication: Epilepsy
     Dosage: 25 MILLIGRAM, 2X/DAY (BID)

REACTIONS (3)
  - Seizure [Not Recovered/Not Resolved]
  - Therapy interrupted [Unknown]
  - Dizziness [Unknown]

NARRATIVE: CASE EVENT DATE: 20221109
